FAERS Safety Report 13064706 (Version 1)
Quarter: 2016Q4

REPORT INFORMATION
  Report Type: Spontaneous
  Country: US (occurrence: US)
  Receive Date: 20161227
  Receipt Date: 20161227
  Transmission Date: 20170207
  Serious: Yes (Other)
  Sender: FDA-Public Use
  Company Number: None

PATIENT
  Age: 56 Year
  Sex: Female
  Weight: 90 kg

DRUGS (10)
  1. XELJANZ XR [Concomitant]
     Active Substance: TOFACITINIB CITRATE
  2. VITAMIN C [Concomitant]
     Active Substance: ASCORBIC ACID
  3. LEXAPRO [Concomitant]
     Active Substance: ESCITALOPRAM OXALATE
  4. LYSINE [Concomitant]
     Active Substance: LYSINE
  5. ECHINACHEA [Concomitant]
  6. IBUPROFEN. [Concomitant]
     Active Substance: IBUPROFEN
  7. ENBREL [Suspect]
     Active Substance: ETANERCEPT
     Indication: RHEUMATOID ARTHRITIS
     Dates: start: 20130301, end: 20140930
  8. VALSARTAN. [Concomitant]
     Active Substance: VALSARTAN
  9. ZINC [Concomitant]
     Active Substance: ZINC\ZINC CHLORIDE
  10. VALIUM [Concomitant]
     Active Substance: DIAZEPAM

REACTIONS (5)
  - Vaginal discharge [None]
  - Vaginal obstruction [None]
  - Vaginal haemorrhage [None]
  - Psoriasis [None]
  - Vaginal inflammation [None]
